FAERS Safety Report 14931702 (Version 2)
Quarter: 2018Q2

REPORT INFORMATION
  Report Type: Spontaneous
  Country: ES (occurrence: ES)
  Receive Date: 20180524
  Receipt Date: 20180530
  Transmission Date: 20180711
  Serious: Yes (Hospitalization)
  Sender: FDA-Public Use
  Company Number: ES-TEVA-2018-ES-895923

PATIENT
  Age: 80 Year
  Sex: Female
  Weight: 83 kg

DRUGS (13)
  1. CALCIO D ISDIN COMPRIMIDOS MASTICABLES, 60 COMPRIMIDOS [Concomitant]
     Active Substance: CALCIUM CARBONATE\CHOLECALCIFEROL
  2. OMEPRAZOL (2141A) [Concomitant]
     Active Substance: OMEPRAZOLE
     Dosage: 20 MILLIGRAM DAILY;
     Route: 048
  3. DORMODOR 30 MG CAPSULAS DURAS, 30 C?PSULAS [Suspect]
     Active Substance: FLURAZEPAM HYDROCHLORIDE
     Route: 048
     Dates: start: 2017, end: 20180311
  4. HIDROFEROL 0,266 MG SOLUCION ORAL , 10 AMPOLLAS BEBIBLES DE 1,5 ML [Concomitant]
     Active Substance: CALCIFEDIOL
     Route: 048
  5. PROLIA [Concomitant]
     Active Substance: DENOSUMAB
     Route: 058
  6. PARACETAMOL (12A) [Concomitant]
     Active Substance: ACETAMINOPHEN
     Route: 048
  7. METAMIZOL (111A) [Concomitant]
     Active Substance: METAMIZOL SODIUM
     Route: 048
  8. EUTIROX 125 MICROGRAMOS COMPRIMIDOS , 100 COMPRIMIDOS [Concomitant]
     Dosage: 125 MICROGRAM DAILY;
     Route: 048
  9. TRAMADOL (2389A) [Suspect]
     Active Substance: TRAMADOL
     Dosage: 50 MILLIGRAM DAILY;
     Route: 048
     Dates: start: 2017, end: 20180328
  10. SIMVASTATINA (1023A) [Concomitant]
     Active Substance: SIMVASTATIN
     Dosage: 10 MILLIGRAM DAILY;
     Route: 048
  11. ALPRAZOLAM (99A) [Concomitant]
     Active Substance: ALPRAZOLAM
     Route: 048
  12. PREGABALINA (3897A) [Concomitant]
     Active Substance: PREGABALIN
     Route: 048
  13. DUROGESIC MATRIX 12 MICROGRAMOS/H PARCHES TRANSDERMICOS , 5 PARCHES [Concomitant]
     Route: 062

REACTIONS (1)
  - Acute respiratory failure [Recovered/Resolved]

NARRATIVE: CASE EVENT DATE: 20180311
